FAERS Safety Report 4897668-2 (Version None)
Quarter: 2006Q1

REPORT INFORMATION
  Report Type: 
  Country: None (occurrence: None)
  Receive Date: 20060130
  Receipt Date: 20060130
  Transmission Date: 20060701
  Serious: No
  Sender: FDA-Public Use
  Company Number: None

PATIENT
  Age: 78 Year
  Sex: Male
  Weight: 72.5755 kg

DRUGS (1)
  1. LOTRISONE [Suspect]
     Indication: TINEA PEDIS
     Dosage: 2 TIMES DAILY (CREAM)
     Dates: start: 20050824, end: 20050909

REACTIONS (1)
  - DRUG INEFFECTIVE [None]
